FAERS Safety Report 9249408 (Version 2)
Quarter: 2013Q3

REPORT INFORMATION
  Report Type: Spontaneous
  Country: US (occurrence: US)
  Receive Date: 20130423
  Receipt Date: 20130919
  Transmission Date: 20140515
  Serious: Yes (Death)
  Sender: FDA-Public Use
  Company Number: US-GLAXOSMITHKLINE-A1012744A

PATIENT
  Sex: Female

DRUGS (5)
  1. FLOLAN [Suspect]
     Indication: PULMONARY ARTERIAL HYPERTENSION
     Dosage: 47.2NGKM CONTINUOUS
     Route: 042
     Dates: start: 20070417
  2. TRACLEER [Concomitant]
  3. COUMADIN [Concomitant]
  4. ADCIRCA [Concomitant]
  5. CLINDAMYCIN [Concomitant]
     Route: 065

REACTIONS (5)
  - Catheter site infection [Unknown]
  - Catheter site erythema [Recovering/Resolving]
  - Catheter site discharge [Recovered/Resolved]
  - Catheter site inflammation [Not Recovered/Not Resolved]
  - Death [Fatal]
